FAERS Safety Report 9378019 (Version 1)
Quarter: 2013Q3

REPORT INFORMATION
  Report Type: Spontaneous
  Country: FR (occurrence: FR)
  Receive Date: 20130701
  Receipt Date: 20130701
  Transmission Date: 20140515
  Serious: Yes (Death, Hospitalization)
  Sender: FDA-Public Use
  Company Number: FR-B.I. PHARMACEUTICALS,INC./RIDGEFIELD-2013-FF-01776FF

PATIENT
  Age: 61 Year
  Sex: Male

DRUGS (7)
  1. PRADAXA [Suspect]
     Indication: ATRIAL FIBRILLATION
     Dosage: 220 MG
     Route: 048
     Dates: start: 2013
  2. DIURETIC [Concomitant]
  3. BISOPROLOL [Concomitant]
  4. CORDARONE [Concomitant]
     Dosage: 0.5 TABLET DAILY
  5. DUROGESIC [Concomitant]
     Route: 062
  6. MOPRAL [Concomitant]
  7. PARIET [Concomitant]

REACTIONS (4)
  - Gastrointestinal haemorrhage [Fatal]
  - Cardiac failure [Unknown]
  - Dyspnoea [Unknown]
  - Abdominal pain upper [Unknown]
